FAERS Safety Report 8185114-5 (Version None)
Quarter: 2012Q1

REPORT INFORMATION
  Report Type: 
  Country: None (occurrence: None)
  Receive Date: 20120213
  Receipt Date: 20111104
  Transmission Date: 20120608
  Serious: Yes (Hospitalization)
  Sender: FDA-Public Use
  Company Number: E2020-09944-SPO-US

PATIENT
  Age: 83 Year
  Sex: Female

DRUGS (7)
  1. SINEMET [Concomitant]
  2. SANCTURA [Concomitant]
  3. WARFARIN SODIUM [Concomitant]
  4. ARICEPT [Suspect]
     Indication: DEMENTIA
     Dosage: 10 MG, 1 IN 1 D, ORAL
     Route: 048
     Dates: start: 20090101, end: 20111103
  5. ATENOLOL [Concomitant]
  6. MIRAPEX [Concomitant]
  7. NAMENDA [Concomitant]

REACTIONS (3)
  - POLLAKIURIA [None]
  - DEHYDRATION [None]
  - HYPOTENSION [None]
